FAERS Safety Report 14446066 (Version 1)
Quarter: 2018Q1

REPORT INFORMATION
  Report Type: Spontaneous
  Country: PL (occurrence: PL)
  Receive Date: 20180126
  Receipt Date: 20180126
  Transmission Date: 20180509
  Serious: Yes (Death)
  Sender: FDA-Public Use
  Company Number: PL-B.I. PHARMACEUTICALS,INC./RIDGEFIELD-2018-BI-004313

PATIENT

DRUGS (2)
  1. PRAXBIND [Suspect]
     Active Substance: IDARUCIZUMAB
     Indication: SHOCK
  2. PRAXBIND [Suspect]
     Active Substance: IDARUCIZUMAB
     Indication: GASTROINTESTINAL HAEMORRHAGE
     Route: 065
     Dates: start: 201712

REACTIONS (1)
  - Cardiac failure [Fatal]
